FAERS Safety Report 21189190 (Version 1)
Quarter: 2022Q3

REPORT INFORMATION
  Report Type: Spontaneous
  Country: US (occurrence: None)
  Receive Date: 20220808
  Receipt Date: 20220808
  Transmission Date: 20221027
  Serious: Yes (Hospitalization)
  Sender: FDA-Public Use
  Company Number: None

PATIENT
  Sex: Female

DRUGS (1)
  1. ALPHANATE [Suspect]
     Active Substance: HUMAN COAGULATION FACTOR VIII/VON WILLEBRAND FACTOR COMPLEX
     Indication: Factor VIII deficiency
     Dosage: OTHER STRENGTH : 2000 U SDV ;?OTHER QUANTITY : 2000 UNIT;?FREQUENCY : AS DIRECTED;?INFUSE TWO 1930 F
     Route: 042
     Dates: start: 20220208

REACTIONS (1)
  - Surgery [None]
